FAERS Safety Report 7825860-3 (Version None)
Quarter: 2011Q4

REPORT INFORMATION
  Report Type: 
  Country: None (occurrence: None)
  Receive Date: 20111019
  Receipt Date: 20111011
  Transmission Date: 20120403
  Serious: Yes (Hospitalization)
  Sender: FDA-Public Use
  Company Number: JP-ROCHE-716807

PATIENT
  Sex: Female
  Weight: 50 kg

DRUGS (5)
  1. PREDNISOLONE [Suspect]
     Indication: RHEUMATOID ARTHRITIS
     Route: 048
  2. BREDININ [Concomitant]
     Route: 048
  3. ISONIAZID [Concomitant]
     Route: 048
  4. ACTEMRA [Suspect]
     Indication: RHEUMATOID ARTHRITIS
     Route: 041
     Dates: start: 20081215, end: 20081215
  5. PREDNISOLONE [Suspect]
     Route: 048

REACTIONS (2)
  - SEPTIC ARTHRITIS STAPHYLOCOCCAL [None]
  - PNEUMONIA [None]
